FAERS Safety Report 9517812 (Version 3)
Quarter: 2016Q3

REPORT INFORMATION
  Report Type: Report from Study
  Country: DE (occurrence: US)
  Receive Date: 20130912
  Receipt Date: 20160701
  Transmission Date: 20161109
  Serious: Yes (Other)
  Sender: FDA-Public Use
  Company Number: DE-009507513-1309USA002481

PATIENT
  Age: 16 Year
  Sex: Female

DRUGS (1)
  1. PRE TRIAL THERAPY [Suspect]
     Active Substance: UNSPECIFIED INGREDIENT
     Indication: CHEMICAL CONTRACEPTION
     Dosage: UNK
     Route: 059

REACTIONS (1)
  - Maternal exposure during pregnancy [Recovered/Resolved]
